FAERS Safety Report 24664961 (Version 1)
Quarter: 2024Q4

REPORT INFORMATION
  Report Type: Spontaneous
  Country: US (occurrence: None)
  Receive Date: 20241121
  Receipt Date: 20241121
  Transmission Date: 20250115
  Serious: Yes (Life-Threatening, Hospitalization, Other)
  Sender: Public
  Company Number: None

PATIENT
  Age: 64 Year
  Sex: Female
  Weight: 58.3 kg

DRUGS (1)
  1. SILDENAFIL [Suspect]
     Active Substance: SILDENAFIL

REACTIONS (4)
  - Ischaemic cerebral infarction [None]
  - Occipital lobe stroke [None]
  - Cardiac complication associated with device [None]
  - Thrombosis in device [None]

NARRATIVE: CASE EVENT DATE: 20240711
